FAERS Safety Report 6663717-4 (Version None)
Quarter: 2010Q2

REPORT INFORMATION
  Report Type: 
  Country: None (occurrence: None)
  Receive Date: 20100401
  Receipt Date: 20100318
  Transmission Date: 20101027
  Serious: Yes (Hospitalization, Other)
  Sender: FDA-Public Use
  Company Number: DE-ROCHE-694306

PATIENT
  Sex: Male
  Weight: 83 kg

DRUGS (3)
  1. BEVACIZUMAB [Suspect]
     Route: 042
     Dates: start: 20090304, end: 20091215
  2. BEVACIZUMAB [Suspect]
     Route: 042
     Dates: end: 20100126
  3. INTERFERON [Concomitant]
     Route: 058
     Dates: start: 20090304, end: 20100202

REACTIONS (4)
  - ANGIODYSPLASIA [None]
  - HAEMOGLOBIN DECREASED [None]
  - IMPAIRED HEALING [None]
  - MELAENA [None]
